FAERS Safety Report 9297082 (Version 1)
Quarter: 2013Q2

REPORT INFORMATION
  Report Type: Spontaneous
  Country: JP (occurrence: JP)
  Receive Date: 20130519
  Receipt Date: 20130519
  Transmission Date: 20140414
  Serious: Yes (Hospitalization)
  Sender: FDA-Public Use
  Company Number: JP-MYLANLABS-2013S1010337

PATIENT
  Age: 33 Year
  Sex: Male
  Weight: 43 kg

DRUGS (4)
  1. MESALAZINE [Suspect]
     Indication: CROHN^S DISEASE
     Route: 065
  2. RANITIDINE [Suspect]
     Indication: CROHN^S DISEASE
     Route: 065
  3. INFLIXIMAB [Concomitant]
     Route: 065
     Dates: start: 2007
  4. POTASSIUM CHLORIDE [Concomitant]
     Indication: HYPOKALAEMIA
     Route: 065

REACTIONS (2)
  - Tubulointerstitial nephritis [Recovering/Resolving]
  - Granuloma [Recovering/Resolving]
